FAERS Safety Report 23293070 (Version 3)
Quarter: 2025Q1

REPORT INFORMATION
  Report Type: Spontaneous
  Country: US (occurrence: US)
  Receive Date: 20231213
  Receipt Date: 20250203
  Transmission Date: 20250408
  Serious: Yes (Other)
  Sender: PFIZER
  Company Number: US-PFIZER INC-202300438879

PATIENT
  Age: 71 Year
  Sex: Male
  Weight: 79.83 kg

DRUGS (3)
  1. VYNDAMAX [Suspect]
     Active Substance: TAFAMIDIS
     Indication: Acquired ATTR amyloidosis
     Dosage: TAKES A CAPSULES IN THE MORNING
  2. VYNDAMAX [Suspect]
     Active Substance: TAFAMIDIS
     Indication: Cardiac disorder
     Dosage: TAKE 1 CAPSULE (61 MG) BY ORAL ROUTE ONCE DAILY
     Route: 048
     Dates: start: 20231117
  3. ROSUVASTATIN [Concomitant]
     Active Substance: ROSUVASTATIN
     Dosage: TAKE 1 TABLET (10 MG) BY ORAL ROUTE ONCE DAILY AT BEDTIME
     Route: 048
     Dates: start: 20240606

REACTIONS (2)
  - Anal cancer stage I [Unknown]
  - Prostate cancer [Unknown]

NARRATIVE: CASE EVENT DATE: 20140101
